FAERS Safety Report 4900718-8 (Version None)
Quarter: 2006Q1

REPORT INFORMATION
  Report Type: 
  Country: None (occurrence: None)
  Receive Date: 20060201
  Receipt Date: 20060130
  Transmission Date: 20060701
  Serious: Yes (Hospitalization, Other)
  Sender: FDA-Public Use
  Company Number: TCI2005A04374

PATIENT
  Age: 77 Year
  Sex: Male

DRUGS (4)
  1. LEUPLIN                 FOR INJECTION KIT3.75 [Suspect]
     Indication: PROSTATE CANCER STAGE I
     Dosage: 3075 MG (3.75 MG, 1 IN 28 D)
     Dates: start: 20050922, end: 20050922
  2. CASODEX [Suspect]
     Dosage: 80 MG (80 MG, 1 IN 1 D) PER ORAL
     Route: 048
     Dates: start: 20050908
  3. CORTRIL [Concomitant]
  4. LEVOTHYROXINE SODIUM [Concomitant]

REACTIONS (8)
  - NEOPLASM PROGRESSION [None]
  - NERVE COMPRESSION [None]
  - OPTIC NERVE INJURY [None]
  - PITUITARY HAEMORRHAGE [None]
  - PITUITARY TUMOUR BENIGN [None]
  - REFUSAL OF TREATMENT BY PATIENT [None]
  - VISUAL ACUITY REDUCED [None]
  - VISUAL FIELD DEFECT [None]
